FAERS Safety Report 5597545-8 (Version None)
Quarter: 2008Q1

REPORT INFORMATION
  Report Type: 
  Country: None (occurrence: None)
  Receive Date: 20080121
  Receipt Date: 20080118
  Transmission Date: 20080703
  Serious: Yes (Other)
  Sender: FDA-Public Use
  Company Number: A0704053A

PATIENT
  Age: 17 Year
  Sex: Female

DRUGS (1)
  1. ALLI [Suspect]
     Indication: INTENTIONAL DRUG MISUSE
     Dosage: 900MG CUMULATIVE DOSE
     Route: 048

REACTIONS (3)
  - HAEMATEMESIS [None]
  - INTENTIONAL DRUG MISUSE [None]
  - INTENTIONAL OVERDOSE [None]
